FAERS Safety Report 8020034-8 (Version None)
Quarter: 2012Q1

REPORT INFORMATION
  Report Type: 
  Country: None (occurrence: None)
  Receive Date: 20120103
  Receipt Date: 20111222
  Transmission Date: 20120608
  Serious: Yes (Hospitalization)
  Sender: FDA-Public Use
  Company Number: JP-BAYER-2011-122212

PATIENT
  Age: 78 Year
  Sex: Male

DRUGS (6)
  1. PREDNISOLONE [Suspect]
     Indication: DRUG RASH WITH EOSINOPHILIA AND SYSTEMIC SYMPTOMS
     Dosage: DAILY DOSE 15 MG
     Route: 065
  2. INSULIN ASPART [Concomitant]
     Indication: TYPE 1 DIABETES MELLITUS
     Dosage: DAILY DOSE 31 U
     Route: 042
     Dates: start: 20070601
  3. INSULIN GLARGINE [Concomitant]
     Indication: TYPE 1 DIABETES MELLITUS
     Dosage: 8 U, HS
     Route: 042
     Dates: start: 20070601
  4. ASPIRIN [Suspect]
     Indication: ANGINA PECTORIS
     Dosage: DAILY DOSE 100 MG
     Route: 048
  5. PREDNISOLONE [Suspect]
     Dosage: DAILY DOSE 15 MG
     Route: 065
  6. LIMAPROST [Concomitant]
     Indication: LUMBAR SPINAL STENOSIS
     Dosage: DAILY DOSE 15 ?G
     Route: 048

REACTIONS (1)
  - SUBCUTANEOUS HAEMATOMA [None]
